FAERS Safety Report 7705235-8 (Version None)
Quarter: 2011Q3

REPORT INFORMATION
  Report Type: 
  Country: None (occurrence: None)
  Receive Date: 20110822
  Receipt Date: 20110822
  Transmission Date: 20111222
  Serious: No
  Sender: FDA-Public Use
  Company Number: None

PATIENT
  Sex: Male
  Weight: 109 kg

DRUGS (1)
  1. PEG-L-ASPARAGINASE (K-H)(644954) [Suspect]
     Dosage: 11800 IU

REACTIONS (2)
  - BLOOD CHOLESTEROL INCREASED [None]
  - BLOOD TRIGLYCERIDES INCREASED [None]
